FAERS Safety Report 8283269-5 (Version None)
Quarter: 2012Q2

REPORT INFORMATION
  Report Type: 
  Country: None (occurrence: None)
  Receive Date: 20120413
  Receipt Date: 20120404
  Transmission Date: 20120825
  Serious: Yes (Other)
  Sender: FDA-Public Use
  Company Number: US-ASTRAZENECA-2012SE21662

PATIENT
  Age: 63 Year
  Sex: Female

DRUGS (6)
  1. LITHIUM CARBONATE [Concomitant]
     Indication: BIPOLAR DISORDER
  2. SEROQUEL [Suspect]
     Indication: SLEEP DISORDER
     Route: 048
  3. DEPAKOTE [Concomitant]
  4. SYNTHROID [Concomitant]
  5. NEXAVAR [Concomitant]
     Indication: THYROID CANCER
  6. SEROQUEL [Suspect]
     Indication: BIPOLAR DISORDER
     Route: 048

REACTIONS (4)
  - METASTASES TO LUNG [None]
  - METASTASES TO LYMPH NODES [None]
  - OFF LABEL USE [None]
  - THYROID CANCER [None]
